FAERS Safety Report 14287818 (Version 4)
Quarter: 2019Q3

REPORT INFORMATION
  Report Type: Report from Study
  Country: US (occurrence: US)
  Receive Date: 20171214
  Receipt Date: 20190925
  Transmission Date: 20191004
  Serious: Yes (Hospitalization, Other)
  Sender: FDA-Public Use
  Company Number: US-ASTELLAS-2017US052688

PATIENT
  Sex: Male

DRUGS (21)
  1. OSTEO                              /00751501/ [Concomitant]
     Active Substance: CALCIUM
     Indication: BLOOD CALCIUM ABNORMAL
     Route: 065
  2. LUPRON DEPOT [Concomitant]
     Active Substance: LEUPROLIDE ACETATE
     Indication: ANDROGEN THERAPY
     Dosage: ONCE IN 03 MONTHS RECENT SHOT ON 03-SEP-2019
     Route: 065
  3. XGEVA [Concomitant]
     Active Substance: DENOSUMAB
     Indication: BONE DISORDER
     Dosage: 1 INJECTION EVERY 3 MONTHS
     Route: 065
     Dates: start: 20180917
  4. ESTRADIOL                          /00045402/ [Concomitant]
     Indication: BLOOD OESTROGEN ABNORMAL
     Dosage: 0.025 MG/24 HRS TWICE IN A WEEK ON SUNDAY AND THURSDAY
     Route: 065
  5. CELEBREX [Concomitant]
     Active Substance: CELECOXIB
     Indication: SWELLING
     Dosage: 100 MG, ONCE DAILY AT BREAKFAST
     Route: 065
  6. PROVENGE [Concomitant]
     Active Substance: SIPULEUCEL-T
     Dosage: UNK, UNKNOWN FREQ.
     Route: 065
     Dates: start: 20181012
  7. ENZALUTAMIDE [Suspect]
     Active Substance: ENZALUTAMIDE
     Indication: PROSTATE CANCER METASTATIC
     Route: 065
     Dates: start: 20160525
  8. SYNTHROID [Concomitant]
     Active Substance: LEVOTHYROXINE SODIUM
     Indication: THYROID FUNCTION TEST ABNORMAL
     Route: 065
  9. SIMVASTATIN. [Concomitant]
     Active Substance: SIMVASTATIN
     Indication: BLOOD CHOLESTEROL ABNORMAL
     Route: 065
  10. LATANOPROST. [Concomitant]
     Active Substance: LATANOPROST
     Indication: GLAUCOMA
     Dosage: 1 DROP EACH EYE, AT BEDTIME
     Route: 050
  11. VITAMIN K+D [Concomitant]
     Indication: VITAMIN D DECREASED
     Route: 065
  12. TYLENOL PM [Concomitant]
     Active Substance: ACETAMINOPHEN\DIPHENHYDRAMINE
     Indication: PAIN
     Route: 065
  13. PROVENGE [Concomitant]
     Active Substance: SIPULEUCEL-T
     Indication: IMMUNE ENHANCEMENT THERAPY
     Dosage: UNK UNK, UNKNOWN FREQ.
     Route: 065
     Dates: start: 20180928
  14. OXYBUTYNIN. [Concomitant]
     Active Substance: OXYBUTYNIN CHLORIDE
     Indication: BLADDER DISORDER
     Dosage: UNK UNK, AS NEEDED (STARTED ON JULY 31 UNKNOWN YEAR)
     Route: 065
  15. ATENOLOL. [Concomitant]
     Active Substance: ATENOLOL
     Indication: HEART RATE ABNORMAL
     Route: 065
  16. AVODART [Concomitant]
     Active Substance: DUTASTERIDE
     Indication: ANDROGEN THERAPY
     Dosage: 0.5 MG, AT BEDTIME
     Route: 065
  17. METFORMIN [Concomitant]
     Active Substance: METFORMIN HYDROCHLORIDE
     Indication: BLOOD GLUCOSE ABNORMAL
     Route: 065
  18. CELEBREX [Concomitant]
     Active Substance: CELECOXIB
     Indication: PAIN
  19. LOSARTAN. [Concomitant]
     Active Substance: LOSARTAN
     Indication: BLOOD PRESSURE ABNORMAL
     Route: 065
  20. VITAMIN B12 [Concomitant]
     Active Substance: CYANOCOBALAMIN
     Indication: RED BLOOD CELL COUNT DECREASED
     Dosage: 1000 MG, ONCE DAILY (AT BREAKFAST)
     Route: 065
  21. PROVENGE [Concomitant]
     Active Substance: SIPULEUCEL-T
     Dosage: UNK, UNKNOWN FREQ.
     Route: 065
     Dates: start: 20181026

REACTIONS (2)
  - Dental caries [Recovering/Resolving]
  - Ureteric obstruction [Recovering/Resolving]
